FAERS Safety Report 21932443 (Version 1)
Quarter: 2023Q1

REPORT INFORMATION
  Report Type: Spontaneous
  Country: DE (occurrence: None)
  Receive Date: 20230131
  Receipt Date: 20230131
  Transmission Date: 20230418
  Serious: Yes (Life-Threatening, Hospitalization, Other)
  Sender: FDA-Public Use
  Company Number: 2022A404431

PATIENT
  Sex: Male

DRUGS (3)
  1. DAPAGLIFLOZIN [Suspect]
     Active Substance: DAPAGLIFLOZIN
     Indication: Type 2 diabetes mellitus
     Route: 048
  2. INSULIN GLARGINE [Concomitant]
     Active Substance: INSULIN GLARGINE
  3. VOTUM [Concomitant]

REACTIONS (7)
  - Hepatic steatosis [Unknown]
  - Euglycaemic diabetic ketoacidosis [Recovered/Resolved]
  - Drug eruption [Recovering/Resolving]
  - Headache [Unknown]
  - Splenomegaly [Unknown]
  - Anti-insulin antibody increased [Unknown]
  - Insulin C-peptide increased [Unknown]
